FAERS Safety Report 26127950 (Version 1)
Quarter: 2025Q4

REPORT INFORMATION
  Report Type: Spontaneous
  Country: EU (occurrence: EU)
  Receive Date: 20251206
  Receipt Date: 20251206
  Transmission Date: 20260118
  Serious: Yes (Other)
  Sender: CELLTRION
  Company Number: EU-AMGEN-ITASP2025229307

PATIENT

DRUGS (10)
  1. ADALIMUMAB [Suspect]
     Active Substance: ADALIMUMAB
     Indication: Loeys-Dietz syndrome
     Dosage: ADDITIONAL INFORMATION ON DRUG: DOSAGE1: UNIT=NOT AVAILABLE/ QWK
     Route: 065
  2. ADALIMUMAB [Suspect]
     Active Substance: ADALIMUMAB
     Indication: Off label use
  3. USTEKINUMAB [Suspect]
     Active Substance: USTEKINUMAB
     Indication: Loeys-Dietz syndrome
     Dosage: UNK
     Route: 065
  4. USTEKINUMAB [Suspect]
     Active Substance: USTEKINUMAB
     Indication: Off label use
  5. ETANERCEPT [Suspect]
     Active Substance: ETANERCEPT
     Indication: Loeys-Dietz syndrome
     Dosage: UNK
     Route: 065
  6. ETANERCEPT [Suspect]
     Active Substance: ETANERCEPT
     Indication: Off label use
  7. ANAKINRA [Concomitant]
     Active Substance: ANAKINRA
     Indication: Loeys-Dietz syndrome
     Dosage: UNK
  8. METHOTREXATE [Concomitant]
     Active Substance: METHOTREXATE
     Indication: Loeys-Dietz syndrome
     Dosage: UNK
  9. METHYLPREDNISOLONE [Concomitant]
     Active Substance: METHYLPREDNISOLONE
     Indication: Loeys-Dietz syndrome
     Dosage: UNK
  10. METHYLPREDNISOLONE [Concomitant]
     Active Substance: METHYLPREDNISOLONE
     Dosage: UNK, DOSE TAPERED

REACTIONS (6)
  - Loeys-Dietz syndrome [Unknown]
  - Periostitis [Unknown]
  - Drug ineffective for unapproved indication [Unknown]
  - Drug effective for unapproved indication [Unknown]
  - Impaired quality of life [Unknown]
  - Off label use [Unknown]
